FAERS Safety Report 4719205-5 (Version None)
Quarter: 2005Q3

REPORT INFORMATION
  Report Type: 
  Country: None (occurrence: None)
  Receive Date: 20050720
  Receipt Date: 20050706
  Transmission Date: 20060218
  Serious: Yes (Hospitalization)
  Sender: FDA-Public Use
  Company Number: 2005099630

PATIENT
  Age: 68 Year
  Sex: Female

DRUGS (2)
  1. IRINOTECAN HCL [Suspect]
     Indication: COLON CANCER
     Dosage: INTRAVENOUS
     Route: 042
  2. FLUOROURACIL [Concomitant]

REACTIONS (1)
  - PULMONARY FIBROSIS [None]
